FAERS Safety Report 6811869-5 (Version None)
Quarter: 2010Q3

REPORT INFORMATION
  Report Type: 
  Country: None (occurrence: None)
  Receive Date: 20100701
  Receipt Date: 20100622
  Transmission Date: 20110219
  Serious: Yes (Other)
  Sender: FDA-Public Use
  Company Number: JP-JNJFOC-20100608022

PATIENT
  Sex: Female
  Weight: 55 kg

DRUGS (10)
  1. DOXIL [Suspect]
     Indication: OVARIAN CANCER RECURRENT
     Dosage: CYCLE 1
     Route: 042
  2. KETOPROFEN [Suspect]
     Indication: PRODUCT USED FOR UNKNOWN INDICATION
     Route: 003
  3. KYTRIL [Concomitant]
     Indication: PROPHYLAXIS
     Route: 042
  4. OXYCONTIN [Concomitant]
     Route: 048
  5. LENDORMIN [Concomitant]
     Indication: PROPHYLAXIS
     Route: 048
  6. SENNOSIDE [Concomitant]
     Indication: PROPHYLAXIS
     Route: 048
  7. ZYRTEC [Concomitant]
     Route: 048
  8. ALLEGRA [Concomitant]
     Route: 048
  9. CELECOXIB [Concomitant]
     Route: 048
  10. MARZULENE-S [Concomitant]
     Route: 048

REACTIONS (1)
  - DELIRIUM [None]
